FAERS Safety Report 17065786 (Version 1)
Quarter: 2019Q4

REPORT INFORMATION
  Report Type: Spontaneous
  Country: US (occurrence: US)
  Receive Date: 20191122
  Receipt Date: 20191122
  Transmission Date: 20200122
  Serious: No
  Sender: FDA-Public Use
  Company Number: None

PATIENT
  Age: 66 Year
  Sex: Male
  Weight: 95.1 kg

DRUGS (2)
  1. AMIFOSTINE. [Suspect]
     Active Substance: AMIFOSTINE
     Indication: RENAL DISORDER PROPHYLAXIS
     Dates: start: 20191114, end: 20191114
  2. AMIFOSTINE. [Suspect]
     Active Substance: AMIFOSTINE
     Indication: MESOTHELIOMA
     Dates: start: 20191114, end: 20191114

REACTIONS (2)
  - Product availability issue [None]
  - Incorrect dose administered [None]
